FAERS Safety Report 4942543-8 (Version None)
Quarter: 2006Q1

REPORT INFORMATION
  Report Type: 
  Country: None (occurrence: None)
  Receive Date: 20060313
  Receipt Date: 20050411
  Transmission Date: 20060701
  Serious: No
  Sender: FDA-Public Use
  Company Number: US-GLAXOSMITHKLINE-A0553520A

PATIENT
  Age: 51 Year
  Sex: Female

DRUGS (1)
  1. NICORETTE (MINT) [Suspect]

REACTIONS (4)
  - FACIAL PAIN [None]
  - NASOPHARYNGITIS [None]
  - SINUS HEADACHE [None]
  - SINUSITIS [None]
